FAERS Safety Report 4264434-0 (Version None)
Quarter: 2004Q1

REPORT INFORMATION
  Report Type: 
  Country: None (occurrence: None)
  Receive Date: 20040106
  Receipt Date: 20031202
  Transmission Date: 20041129
  Serious: Yes (Other)
  Sender: FDA-Public Use
  Company Number: GB-GLAXOSMITHKLINE-B0316540A

PATIENT
  Age: 56 Year
  Sex: Male

DRUGS (2)
  1. SEROXAT [Suspect]
     Indication: DEPRESSION
     Dosage: 20MG PER DAY
     Route: 048
     Dates: start: 20010101, end: 20031202
  2. THYROXINE [Concomitant]
     Indication: HYPOTHYROIDISM
     Dosage: 200MCG PER DAY
     Route: 048
     Dates: start: 20010101

REACTIONS (2)
  - HYPOMANIA [None]
  - PROLACTINOMA [None]
